FAERS Safety Report 5716401-5 (Version None)
Quarter: 2008Q2

REPORT INFORMATION
  Report Type: 
  Country: None (occurrence: None)
  Receive Date: 20080415
  Receipt Date: 20080311
  Transmission Date: 20081010
  Serious: Yes (Hospitalization)
  Sender: FDA-Public Use
  Company Number: PHEH2008US02689

PATIENT
  Sex: Female

DRUGS (2)
  1. EXFORGE [Suspect]
     Dosage: 5/160MG, QD ; 5/160 - 1/2 TAB IN THE AM / 1/2 TAB IN PM ; NO TREATMENT
     Dates: start: 20080201
  2. EXFORGE [Suspect]
     Dosage: 5/160MG, QD ; 5/160 - 1/2 TAB IN THE AM / 1/2 TAB IN PM ; NO TREATMENT
     Dates: start: 20080311

REACTIONS (3)
  - PRURITUS [None]
  - SKIN BURNING SENSATION [None]
  - SKIN EXFOLIATION [None]
